FAERS Safety Report 8265078-6 (Version None)
Quarter: 2012Q2

REPORT INFORMATION
  Report Type: 
  Country: None (occurrence: None)
  Receive Date: 20120403
  Receipt Date: 20120323
  Transmission Date: 20120825
  Serious: Yes (Other)
  Sender: FDA-Public Use
  Company Number: ES-1190931

PATIENT
  Age: 50 Year
  Sex: Male

DRUGS (11)
  1. VIGAMOX [Suspect]
     Dosage: (0.2-0.3 ML OF DILUTION 3 CC VIGAMOX + 3 CC ACTOCORTINA INTRAOCULAR)
     Route: 031
     Dates: start: 20120222
  2. AMIKACINA [Concomitant]
  3. VANCOMICINA [Concomitant]
  4. BETADINE [Concomitant]
  5. LIQUIFILM [Concomitant]
  6. CEFTAZIDIMA [Concomitant]
  7. ACTOCORTINA [Concomitant]
  8. VISCOAT [Concomitant]
  9. BSS [Concomitant]
  10. BUPIVACAINA [Concomitant]
  11. LIDOCAINA [Concomitant]

REACTIONS (2)
  - ENDOPHTHALMITIS [None]
  - OFF LABEL USE [None]
